FAERS Safety Report 7442408-6 (Version None)
Quarter: 2011Q2

REPORT INFORMATION
  Report Type: 
  Country: None (occurrence: None)
  Receive Date: 20110420
  Receipt Date: 20110405
  Transmission Date: 20111010
  Serious: No
  Sender: FDA-Public Use
  Company Number: 21-703-2011-00001

PATIENT
  Age: 63 Day
  Sex: Male
  Weight: 4.2 kg

DRUGS (3)
  1. PRISMAFLEX HF100 [Concomitant]
  2. PRISMASOL B22GK 2/0 [Suspect]
     Dosage: HEMODIALYSIS, INTRAVENOUS
     Route: 042
     Dates: start: 20110218
  3. PRISMAFLEX SN [Concomitant]

REACTIONS (1)
  - THROMBOCYTOPENIA [None]
